FAERS Safety Report 19501563 (Version 1)
Quarter: 2021Q3

REPORT INFORMATION
  Report Type: Spontaneous
  Country: US (occurrence: US)
  Receive Date: 20210707
  Receipt Date: 20210707
  Transmission Date: 20211014
  Serious: No
  Sender: FDA-Public Use
  Company Number: None

PATIENT
  Age: 65 Year
  Sex: Male

DRUGS (1)
  1. FAMOTIDINE (FAMOTIDINE 20MG TAB) [Suspect]
     Active Substance: FAMOTIDINE
     Dosage: ?          OTHER DOSE:ONE TAB;?
     Route: 048
     Dates: start: 20190813, end: 20200529

REACTIONS (4)
  - Orthostatic intolerance [None]
  - Dizziness [None]
  - Hypovolaemia [None]
  - Hypotension [None]

NARRATIVE: CASE EVENT DATE: 20200602
